FAERS Safety Report 5954194-7 (Version None)
Quarter: 2008Q4

REPORT INFORMATION
  Report Type: 
  Country: None (occurrence: None)
  Receive Date: 20081117
  Receipt Date: 20081106
  Transmission Date: 20090506
  Serious: Yes (Other)
  Sender: FDA-Public Use
  Company Number: US-JNJFOC-20081101950

PATIENT
  Sex: Female

DRUGS (3)
  1. REMICADE [Suspect]
     Indication: ANKYLOSING SPONDYLITIS
  2. METHOTREXATE [Concomitant]
     Indication: ANKYLOSING SPONDYLITIS
  3. SULFASALAZINE [Concomitant]
     Indication: ANKYLOSING SPONDYLITIS

REACTIONS (2)
  - DIPLEGIA [None]
  - SPINAL CORD DISORDER [None]
